FAERS Safety Report 6206982-X (Version None)
Quarter: 2009Q2

REPORT INFORMATION
  Report Type: 
  Country: None (occurrence: None)
  Receive Date: 20090528
  Receipt Date: 20090520
  Transmission Date: 20091009
  Serious: Yes (Hospitalization)
  Sender: FDA-Public Use
  Company Number: B0575998A

PATIENT
  Sex: Female

DRUGS (1)
  1. AUGMENTIN '125' [Suspect]
     Indication: BRONCHOPNEUMONIA
     Route: 048
     Dates: start: 20090404, end: 20090405

REACTIONS (3)
  - HYPOTENSION [None]
  - PYREXIA [None]
  - RASH GENERALISED [None]
